FAERS Safety Report 9687636 (Version 2)
Quarter: 2013Q4

REPORT INFORMATION
  Report Type: Spontaneous
  Country: GB (occurrence: None)
  Receive Date: 20131112
  Receipt Date: 20131211
  Transmission Date: 20140711
  Serious: Yes (Other)
  Sender: FDA-Public Use
  Company Number: AUR-APL-2013-09512

PATIENT
  Age: 44 Year
  Sex: Male
  Weight: 87 kg

DRUGS (6)
  1. METFORMIN [Suspect]
     Indication: TYPE 2 DIABETES MELLITUS
     Dosage: 1 IN 1 D
     Route: 048
     Dates: start: 201207
  2. CRIZOTINIB [Suspect]
     Indication: SARCOMA
     Dosage: 500 MG (250 MG, 2 IN 1 D),ORAL
     Route: 048
     Dates: start: 20130930, end: 20131015
  3. CYCLIZINE (CYCLIZINE) [Concomitant]
  4. METOCLOPRAMIDE (METOCLOPRAMIDE) [Concomitant]
  5. ONDANSETRON (ONDANSETRON) [Concomitant]
  6. MOVICOL (POLYETHYL. GLYC. W/POTAS. CHLOR./SOD. BICARB.) [Concomitant]

REACTIONS (6)
  - Renal impairment [None]
  - Nausea [None]
  - Headache [None]
  - Papilloedema [None]
  - Aspartate aminotransferase increased [None]
  - Alanine aminotransferase increased [None]
